FAERS Safety Report 9009280 (Version 1)
Quarter: 2013Q1

REPORT INFORMATION
  Report Type: Spontaneous
  Country: IT (occurrence: IT)
  Receive Date: 20130111
  Receipt Date: 20130111
  Transmission Date: 20140127
  Serious: Yes (Other)
  Sender: FDA-Public Use
  Company Number: IT-GLAXOSMITHKLINE-B0857974A

PATIENT
  Age: 18 Year
  Sex: Male

DRUGS (8)
  1. RANITIDINE [Suspect]
     Indication: SURGERY
     Route: 042
  2. PROPOFOL [Concomitant]
     Indication: INDUCTION OF ANAESTHESIA
     Route: 065
  3. REMIFENTANIL [Concomitant]
     Indication: INDUCTION OF ANAESTHESIA
     Route: 065
  4. CISATRACURIUM [Concomitant]
     Indication: INDUCTION OF ANAESTHESIA
  5. SEVOFLURANE [Concomitant]
     Indication: INDUCTION OF ANAESTHESIA
     Route: 065
  6. ONDANSETRON [Concomitant]
     Indication: SURGERY
     Route: 042
  7. DEXAMETHASONE [Concomitant]
     Indication: SURGERY
     Route: 042
  8. TRAMADOL [Concomitant]
     Indication: SURGERY
     Route: 042

REACTIONS (5)
  - Anaphylactic reaction [Recovered/Resolved]
  - Tachycardia [Recovered/Resolved]
  - Hypotension [Recovered/Resolved]
  - Airway peak pressure increased [Recovered/Resolved]
  - Tryptase increased [Unknown]
